FAERS Safety Report 6837024-0 (Version None)
Quarter: 2010Q3

REPORT INFORMATION
  Report Type: 
  Country: None (occurrence: None)
  Receive Date: 20100713
  Receipt Date: 20070430
  Transmission Date: 20110219
  Serious: No
  Sender: FDA-Public Use
  Company Number: US-PFIZER INC-2007036352

PATIENT
  Sex: Male

DRUGS (3)
  1. CHANTIX [Suspect]
     Indication: SMOKING CESSATION THERAPY
     Dates: start: 20070422, end: 20070423
  2. TYLENOL [Concomitant]
     Indication: LUNG NEOPLASM MALIGNANT
  3. TAXOTERE [Concomitant]
     Indication: LUNG NEOPLASM MALIGNANT

REACTIONS (1)
  - INSOMNIA [None]
